FAERS Safety Report 7540840-3 (Version None)
Quarter: 2011Q2

REPORT INFORMATION
  Report Type: 
  Country: None (occurrence: None)
  Receive Date: 20110610
  Receipt Date: 20110607
  Transmission Date: 20111010
  Serious: Yes (Death)
  Sender: FDA-Public Use
  Company Number: NO-ROCHE-781332

PATIENT
  Sex: Female
  Weight: 85 kg

DRUGS (4)
  1. XELODA [Suspect]
     Route: 048
     Dates: start: 20110520
  2. ZOFRAN [Concomitant]
     Indication: ANTIEMETIC SUPPORTIVE CARE
  3. AFIPRAN [Concomitant]
     Indication: ANTIEMETIC SUPPORTIVE CARE
     Dosage: DOSE: 10- 20 MG
     Route: 048
  4. IMODIUM [Concomitant]
     Route: 048

REACTIONS (1)
  - SUDDEN DEATH [None]
